FAERS Safety Report 11668384 (Version 1)
Quarter: 2015Q4

REPORT INFORMATION
  Report Type: Spontaneous
  Country: US (occurrence: US)
  Receive Date: 20151027
  Receipt Date: 20151027
  Transmission Date: 20160304
  Serious: No
  Sender: FDA-Public Use
  Company Number: US-ELI_LILLY_AND_COMPANY-US201003006935

PATIENT
  Age: 81 Year
  Sex: Female

DRUGS (2)
  1. FORTEO [Suspect]
     Active Substance: TERIPARATIDE
     Dates: start: 200910
  2. OXYGEN. [Concomitant]
     Active Substance: OXYGEN
     Dosage: 24 HRS A DAY

REACTIONS (5)
  - Feeling abnormal [Unknown]
  - Nasal dryness [Unknown]
  - Swelling face [Unknown]
  - Hypoaesthesia [Unknown]
  - Epistaxis [Unknown]

NARRATIVE: CASE EVENT DATE: 20100306
